FAERS Safety Report 9439071 (Version 1)
Quarter: 2013Q3

REPORT INFORMATION
  Report Type: Report from Study
  Country: US (occurrence: US)
  Receive Date: 20130802
  Receipt Date: 20130802
  Transmission Date: 20140515
  Serious: Yes (Hospitalization)
  Sender: FDA-Public Use
  Company Number: US-ABBOTT-13P-163-1124743-00

PATIENT
  Age: 46 Year
  Sex: Female
  Weight: 88.53 kg

DRUGS (17)
  1. HUMIRA [Suspect]
     Indication: CROHN^S DISEASE
     Dates: start: 20130415
  2. METHOTREXATE [Concomitant]
     Indication: PROPHYLAXIS
     Dosage: 2.5 MG ON FRIDAYS
  3. CRESTOR [Concomitant]
     Indication: BLOOD CHOLESTEROL INCREASED
  4. CELEXA [Concomitant]
     Indication: ANXIETY
  5. FOLIC ACID [Concomitant]
     Indication: CROHN^S DISEASE
     Dosage: 1 MG DAILY
  6. ACYCLOVIR [Concomitant]
     Indication: GENITAL HERPES
     Dosage: 400 MG TWICE DAILY
  7. KLOR [Concomitant]
     Indication: CROHN^S DISEASE
     Dosage: 10 MEQ TWICE DAILY
  8. LOSARTAN [Concomitant]
     Indication: HYPERTENSION
     Dosage: 50 MG DAILY
  9. MAGNESIUM OXIDE [Concomitant]
     Indication: CROHN^S DISEASE
     Dosage: 400 MG DAILY
  10. VITAMIN B12 [Concomitant]
     Indication: CROHN^S DISEASE
  11. HUMULOG SHORT ACTING [Concomitant]
     Indication: PRODUCT USED FOR UNKNOWN INDICATION
     Dosage: SLIDING SCALE 304 TIMES DAILY
  12. LANTUS-LONG ACTING [Concomitant]
     Dosage: 35 UNITS AT BEDTIME
  13. NORCO 5-325 MG (1-2) [Concomitant]
     Indication: PAIN
     Dosage: PRN THORACOTOMY PAIN
  14. XANAX [Concomitant]
     Dosage: .25MG AT BEDRIME FOR SLEEP
  15. OXYGEN [Concomitant]
     Dosage: 8 LITERS WITH CPAP AT BEDTIME
  16. PREDNISONE [Concomitant]
     Indication: CROHN^S DISEASE
     Dosage: 40MG DAILY
  17. PREDNISONE [Concomitant]
     Indication: LUNG DISORDER

REACTIONS (6)
  - Asthenia [Not Recovered/Not Resolved]
  - Crohn^s disease [Recovering/Resolving]
  - Oral candidiasis [Not Recovered/Not Resolved]
  - Gastrointestinal ulcer [Unknown]
  - Drug ineffective [Not Recovered/Not Resolved]
  - Pyrexia [Recovered/Resolved]
